FAERS Safety Report 14720724 (Version 1)
Quarter: 2018Q1

REPORT INFORMATION
  Report Type: Spontaneous
  Country: US (occurrence: US)
  Receive Date: 20180330
  Receipt Date: 20180330
  Transmission Date: 20180509
  Serious: No
  Sender: FDA-Public Use
  Company Number: None

PATIENT
  Age: 50 Year
  Sex: Female
  Weight: 86.85 kg

DRUGS (5)
  1. IMATINIB MESYLATE TABLET APOTEX INC [Suspect]
     Active Substance: IMATINIB MESYLATE
     Indication: GASTROINTESTINAL STROMAL TUMOUR
     Dosage: ?          QUANTITY:4 TABLET(S);?
     Route: 048
  2. LEXAPRO [Concomitant]
     Active Substance: ESCITALOPRAM OXALATE
  3. GLEEVEC [Concomitant]
     Active Substance: IMATINIB MESYLATE
  4. BAYER ASPIRIN [Concomitant]
     Active Substance: ASPIRIN
  5. CRESTOR [Concomitant]
     Active Substance: ROSUVASTATIN CALCIUM

REACTIONS (3)
  - Lacrimation increased [None]
  - Dry eye [None]
  - Foreign body sensation in eyes [None]

NARRATIVE: CASE EVENT DATE: 20180329
